FAERS Safety Report 14170389 (Version 1)
Quarter: 2017Q4

REPORT INFORMATION
  Report Type: Spontaneous
  Country: US (occurrence: None)
  Receive Date: 20171108
  Receipt Date: 20171108
  Transmission Date: 20180321
  Serious: No
  Sender: FDA-Public Use
  Company Number: None

PATIENT
  Age: 69 Year
  Sex: Male

DRUGS (1)
  1. GENTAMICIN 40MG/ML FREBEBIUS KABI USA [Suspect]
     Active Substance: GENTAMICIN
     Indication: SPINAL CORD ABSCESS
     Route: 042
     Dates: start: 20170920, end: 20170924

REACTIONS (1)
  - Tinnitus [None]

NARRATIVE: CASE EVENT DATE: 20170922
